FAERS Safety Report 18249042 (Version 1)
Quarter: 2020Q3

REPORT INFORMATION
  Report Type: Spontaneous
  Country: US (occurrence: US)
  Receive Date: 20200909
  Receipt Date: 20200909
  Transmission Date: 20201103
  Serious: No
  Sender: FDA-Public Use
  Company Number: US-PERRIGO-20US011667

PATIENT
  Age: 55 Year
  Sex: Female

DRUGS (2)
  1. ALBUTEROL SULFATE. [Suspect]
     Active Substance: ALBUTEROL SULFATE
     Indication: DYSPNOEA
     Dosage: UNKNOWN, EVERY 4 HOURS
     Route: 055
     Dates: start: 202008
  2. ALBUTEROL SULFATE. [Suspect]
     Active Substance: ALBUTEROL SULFATE
     Dosage: 180 MCG, EVERY 4 HOURS
     Route: 055
     Dates: start: 20200803, end: 202008

REACTIONS (2)
  - Device delivery system issue [Unknown]
  - Underdose [Unknown]

NARRATIVE: CASE EVENT DATE: 202008
